FAERS Safety Report 26150644 (Version 3)
Quarter: 2025Q4

REPORT INFORMATION
  Report Type: Spontaneous
  Country: PH (occurrence: PH)
  Receive Date: 20251212
  Receipt Date: 20251229
  Transmission Date: 20260118
  Serious: Yes (Hospitalization, Other)
  Sender: RANBAXY
  Company Number: PH-SUN PHARMACEUTICAL INDUSTRIES INC-2025R1-541184

PATIENT
  Age: 28 Year
  Sex: Female

DRUGS (1)
  1. CYPROTERONE ACETATE\ETHINYL ESTRADIOL [Suspect]
     Active Substance: CYPROTERONE ACETATE\ETHINYL ESTRADIOL
     Indication: Polycystic ovarian syndrome
     Dosage: 2 MG /45MCG 1 TAB OD
     Route: 065
     Dates: start: 2016

REACTIONS (1)
  - Steatohepatitis [Unknown]
